FAERS Safety Report 4934095-3 (Version None)
Quarter: 2006Q1

REPORT INFORMATION
  Report Type: 
  Country: None (occurrence: None)
  Receive Date: 20060303
  Receipt Date: 20060222
  Transmission Date: 20060701
  Serious: Yes (Other)
  Sender: FDA-Public Use
  Company Number: 163-20785-06010305

PATIENT
  Age: 64 Year
  Sex: Male

DRUGS (6)
  1. THALOMID [Suspect]
     Indication: MULTIPLE MYELOMA
     Dosage: SEE IMAGE
     Route: 048
     Dates: start: 20031008, end: 20031001
  2. THALOMID [Suspect]
     Indication: MULTIPLE MYELOMA
     Dosage: SEE IMAGE
     Route: 048
     Dates: start: 20031001, end: 20031110
  3. DEXAMETHASONE [Concomitant]
  4. HYDROCODONE BITARTRATE [Concomitant]
  5. ASCORBIC ACID [Concomitant]
  6. MULTIVITAMIN [Concomitant]

REACTIONS (6)
  - BLINDNESS UNILATERAL [None]
  - BLOOD PRESSURE INCREASED [None]
  - BLOOD PRESSURE SYSTOLIC INCREASED [None]
  - HYPERGAMMAGLOBULINAEMIA [None]
  - MONOCLONAL IMMUNOGLOBULIN PRESENT [None]
  - RETINAL VEIN OCCLUSION [None]
